FAERS Safety Report 24363221 (Version 2)
Quarter: 2025Q1

REPORT INFORMATION
  Report Type: Spontaneous
  Country: CA (occurrence: CA)
  Receive Date: 20240925
  Receipt Date: 20250219
  Transmission Date: 20250408
  Serious: Yes (Life-Threatening, Hospitalization, Disabling, Congenital Anomaly, Other)
  Sender: ORGANON
  Company Number: CA-ORGANON-O2409CAN001677

PATIENT
  Age: 67 Year
  Sex: Female
  Weight: 73 kg

DRUGS (70)
  1. FOSAMAX [Suspect]
     Active Substance: ALENDRONATE SODIUM
     Indication: Product used for unknown indication
     Dosage: 70.0 MILLIGRAM, 1 EVERY 1 WEEKS
     Route: 065
  2. ACTEMRA [Suspect]
     Active Substance: TOCILIZUMAB
     Indication: Rheumatoid arthritis
     Route: 065
  3. ACTEMRA [Suspect]
     Active Substance: TOCILIZUMAB
     Indication: Product used for unknown indication
     Route: 042
  4. ACTEMRA [Suspect]
     Active Substance: TOCILIZUMAB
     Route: 065
  5. ACTEMRA [Suspect]
     Active Substance: TOCILIZUMAB
     Route: 065
  6. ACTEMRA [Suspect]
     Active Substance: TOCILIZUMAB
     Route: 065
  7. ACTEMRA [Suspect]
     Active Substance: TOCILIZUMAB
     Route: 065
  8. ACTEMRA [Suspect]
     Active Substance: TOCILIZUMAB
     Route: 065
  9. ACTEMRA [Suspect]
     Active Substance: TOCILIZUMAB
     Route: 042
  10. CHLOROQUINE HYDROCHLORIDE [Suspect]
     Active Substance: CHLOROQUINE HYDROCHLORIDE
     Indication: Rheumatoid arthritis
     Route: 065
  11. AZATHIOPRINE [Suspect]
     Active Substance: AZATHIOPRINE
     Route: 065
  12. AZATHIOPRINE [Suspect]
     Active Substance: AZATHIOPRINE
     Indication: Product used for unknown indication
     Route: 065
  13. BENDAMUSTINE [Suspect]
     Active Substance: BENDAMUSTINE
     Indication: Product used for unknown indication
     Route: 065
  14. BENDAMUSTINE HYDROCHLORIDE [Suspect]
     Active Substance: BENDAMUSTINE HYDROCHLORIDE
     Indication: Product used for unknown indication
     Route: 065
  15. BORTEZOMIB [Suspect]
     Active Substance: BORTEZOMIB
     Indication: Product used for unknown indication
     Route: 065
  16. BUDESONIDE [Suspect]
     Active Substance: BUDESONIDE
     Indication: Product used for unknown indication
     Route: 065
  17. CELEBREX [Suspect]
     Active Substance: CELECOXIB
     Indication: Rheumatoid arthritis
     Route: 065
  18. CELECOXIB [Suspect]
     Active Substance: CELECOXIB
     Indication: Rheumatoid arthritis
     Route: 065
  19. CODEINE [Suspect]
     Active Substance: CODEINE
     Indication: Product used for unknown indication
     Route: 065
  20. CIMZIA [Suspect]
     Active Substance: CERTOLIZUMAB PEGOL
     Indication: Product used for unknown indication
     Route: 065
  21. DEXAMETHASONE [Suspect]
     Active Substance: DEXAMETHASONE
     Route: 065
  22. DEXAMETHASONE [Suspect]
     Active Substance: DEXAMETHASONE
     Indication: Product used for unknown indication
     Route: 065
  23. DOXYCYCLINE HYCLATE [Suspect]
     Active Substance: DOXYCYCLINE HYCLATE
     Indication: Product used for unknown indication
     Route: 065
  24. ENBREL [Suspect]
     Active Substance: ETANERCEPT
     Indication: Rheumatoid arthritis
     Route: 058
  25. HUMIRA [Suspect]
     Active Substance: ADALIMUMAB
     Indication: Rheumatoid arthritis
     Route: 058
  26. HYDROXYCHLOROQUINE [Suspect]
     Active Substance: HYDROXYCHLOROQUINE
     Indication: Rheumatoid arthritis
     Dosage: 200.0 MILLIGRAM, 1 EVERY 1 DAYS
     Route: 048
  27. HYDROXYCHLOROQUINE [Suspect]
     Active Substance: HYDROXYCHLOROQUINE
     Indication: Rheumatoid arthritis
     Dosage: 200 MILLIGRAM, 1 EVERY 1 DAYS
     Route: 048
  28. INFLIXIMAB [Suspect]
     Active Substance: INFLIXIMAB
     Indication: Product used for unknown indication
     Route: 065
  29. LEFLUNOMIDE [Suspect]
     Active Substance: LEFLUNOMIDE
     Indication: Rheumatoid arthritis
     Route: 048
  30. LENALIDOMIDE [Suspect]
     Active Substance: LENALIDOMIDE
     Indication: Rheumatoid arthritis
     Route: 065
  31. LENALIDOMIDE [Suspect]
     Active Substance: LENALIDOMIDE
     Indication: Rheumatoid arthritis
     Route: 065
  32. METHOTREXATE [Suspect]
     Active Substance: METHOTREXATE
     Indication: Rheumatoid arthritis
     Route: 065
  33. METHOTREXATE [Suspect]
     Active Substance: METHOTREXATE
     Route: 065
  34. MAGNESIUM OXIDE [Suspect]
     Active Substance: MAGNESIUM OXIDE
     Indication: Product used for unknown indication
     Route: 065
  35. METHOTREXATE SODIUM [Suspect]
     Active Substance: METHOTREXATE SODIUM
     Indication: Rheumatoid arthritis
     Route: 065
  36. METHOTREXATE SODIUM [Suspect]
     Active Substance: METHOTREXATE SODIUM
     Route: 065
  37. MYOCHRYSINE [Suspect]
     Active Substance: GOLD SODIUM THIOMALATE
     Indication: Rheumatoid arthritis
     Route: 030
  38. MYOCHRYSINE [Suspect]
     Active Substance: GOLD SODIUM THIOMALATE
     Indication: Product used for unknown indication
  39. NAPROXEN [Suspect]
     Active Substance: NAPROXEN
     Indication: Product used for unknown indication
     Route: 065
  40. ORENCIA [Suspect]
     Active Substance: ABATACEPT
     Indication: Rheumatoid arthritis
     Route: 042
  41. PERIOGARD [Suspect]
     Active Substance: CHLORHEXIDINE GLUCONATE
     Indication: Product used for unknown indication
     Route: 002
  42. REMICADE [Suspect]
     Active Substance: INFLIXIMAB
     Indication: Rheumatoid arthritis
     Route: 042
  43. REMICADE [Suspect]
     Active Substance: INFLIXIMAB
     Indication: Crohn^s disease
  44. RITUXIMAB [Suspect]
     Active Substance: RITUXIMAB
     Indication: Rheumatoid arthritis
     Route: 042
  45. RITUXIMAB [Suspect]
     Active Substance: RITUXIMAB
     Route: 065
  46. SULFASALAZINE [Suspect]
     Active Substance: SULFASALAZINE
     Indication: Rheumatoid arthritis
     Route: 065
  47. LEFLUNOMIDE [Suspect]
     Active Substance: LEFLUNOMIDE
     Indication: Rheumatoid arthritis
     Route: 048
  48. XELJANZ [Suspect]
     Active Substance: TOFACITINIB CITRATE
     Indication: Rheumatoid arthritis
     Route: 048
  49. ACTEMRA [Concomitant]
     Active Substance: TOCILIZUMAB
     Route: 065
  50. AMLODIPINE BESYLATE [Concomitant]
     Active Substance: AMLODIPINE BESYLATE
     Indication: Product used for unknown indication
     Route: 065
  51. ATENOLOL [Concomitant]
     Active Substance: ATENOLOL
     Indication: Product used for unknown indication
     Route: 065
  52. CYCLOSPORINE [Concomitant]
     Active Substance: CYCLOSPORINE
     Indication: Product used for unknown indication
     Route: 065
  53. CYANOCOBALAMIN [Concomitant]
     Active Substance: CYANOCOBALAMIN
     Indication: Product used for unknown indication
     Route: 065
  54. ERGOCALCIFEROL [Concomitant]
     Active Substance: ERGOCALCIFEROL
     Indication: Product used for unknown indication
     Route: 065
  55. GOLD [Concomitant]
     Active Substance: GOLD
     Route: 065
  56. IRON [Concomitant]
     Active Substance: IRON
     Route: 065
  57. LYRICA [Concomitant]
     Active Substance: PREGABALIN
     Indication: Product used for unknown indication
     Route: 065
  58. PRAMIPEXOLE [Concomitant]
     Active Substance: PRAMIPEXOLE
     Route: 065
  59. PREDNISONE [Concomitant]
     Active Substance: PREDNISONE
     Indication: Product used for unknown indication
     Route: 065
  60. PROPRANOLOL [Concomitant]
     Active Substance: PROPRANOLOL HYDROCHLORIDE
     Indication: Product used for unknown indication
     Route: 065
  61. RAMIPRIL [Concomitant]
     Active Substance: RAMIPRIL
     Route: 065
  62. SERTRALINE [Concomitant]
     Active Substance: SERTRALINE HYDROCHLORIDE
     Route: 065
  63. SIMPONI [Concomitant]
     Active Substance: GOLIMUMAB
     Indication: Product used for unknown indication
     Route: 058
  64. TRAZODONE [Concomitant]
     Active Substance: TRAZODONE HYDROCHLORIDE
     Indication: Product used for unknown indication
     Route: 065
  65. ZEPATIER [Concomitant]
     Active Substance: ELBASVIR\GRAZOPREVIR
     Indication: Product used for unknown indication
     Route: 065
  66. FERROUS FUMARATE [Concomitant]
     Active Substance: FERROUS FUMARATE
     Indication: Product used for unknown indication
     Route: 065
  67. GOLD [Concomitant]
     Active Substance: GOLD
     Indication: Product used for unknown indication
     Route: 065
  68. PRAMIPEXOLE DIHYDROCHLORIDE [Concomitant]
     Active Substance: PRAMIPEXOLE DIHYDROCHLORIDE
     Indication: Product used for unknown indication
     Route: 065
  69. RAMIPRIL [Concomitant]
     Active Substance: RAMIPRIL
     Indication: Product used for unknown indication
     Route: 065
  70. SERTRALINE HYDROCHLORIDE [Concomitant]
     Active Substance: SERTRALINE HYDROCHLORIDE
     Indication: Product used for unknown indication
     Route: 065

REACTIONS (58)
  - Abdominal pain [Unknown]
  - Alanine aminotransferase increased [Unknown]
  - Alopecia [Unknown]
  - Arthralgia [Unknown]
  - Arthritis [Unknown]
  - Arthropathy [Unknown]
  - Aspartate aminotransferase increased [Unknown]
  - Basal cell carcinoma [Unknown]
  - Blood parathyroid hormone decreased [Unknown]
  - Breath sounds abnormal [Unknown]
  - C-reactive protein abnormal [Unknown]
  - C-reactive protein increased [Unknown]
  - Condition aggravated [Unknown]
  - Dermatitis [Unknown]
  - Drug eruption [Unknown]
  - Drug hypersensitivity [Unknown]
  - Drug intolerance [Unknown]
  - Drug tolerance [Unknown]
  - Erythema [Unknown]
  - Fatigue [Unknown]
  - Gastrointestinal disorder [Unknown]
  - Granuloma skin [Unknown]
  - Headache [Unknown]
  - Hepatic enzyme increased [Unknown]
  - Hepatitis [Unknown]
  - Hypercalcaemia [Unknown]
  - Hypersensitivity [Unknown]
  - Hypertension [Unknown]
  - Inflammation [Unknown]
  - Infusion related reaction [Unknown]
  - Insomnia [Unknown]
  - Joint swelling [Unknown]
  - Loss of personal independence in daily activities [Unknown]
  - Musculoskeletal stiffness [Unknown]
  - Nausea [Unknown]
  - Neoplasm skin [Unknown]
  - Pain [Unknown]
  - Panniculitis [Unknown]
  - Peripheral swelling [Unknown]
  - Pneumonia [Unknown]
  - Pruritus [Unknown]
  - Pulmonary fibrosis [Unknown]
  - Rash [Unknown]
  - Rash pruritic [Unknown]
  - Red blood cell sedimentation rate increased [Unknown]
  - Rheumatoid arthritis [Unknown]
  - Rheumatoid arthritis [Unknown]
  - Rheumatoid factor positive [Unknown]
  - Rheumatoid nodule [Unknown]
  - Skin necrosis [Unknown]
  - Skin neoplasm excision [Unknown]
  - Skin ulcer [Unknown]
  - Synovitis [Unknown]
  - Therapeutic product effect decreased [Unknown]
  - Ulcer [Unknown]
  - Vomiting [Unknown]
  - Prescribed underdose [Unknown]
  - Off label use [Unknown]
